FAERS Safety Report 7416163-X (Version None)
Quarter: 2011Q2

REPORT INFORMATION
  Report Type: 
  Country: None (occurrence: None)
  Receive Date: 20110414
  Receipt Date: 20110318
  Transmission Date: 20111010
  Serious: No
  Sender: FDA-Public Use
  Company Number: US-B.I. PHARMACEUTICALS,INC./RIDGEFIELD-2010-BP-13469BP

PATIENT
  Sex: Female

DRUGS (4)
  1. FUROSEMIDE [Concomitant]
     Indication: FLUID RETENTION
  2. NORVASC [Concomitant]
     Indication: HYPERTENSION
  3. SPIRIVA [Suspect]
     Indication: DYSPNOEA
     Dosage: 18 MCG
     Route: 055
     Dates: start: 20101128
  4. SPIRIVA [Suspect]
     Indication: CHRONIC OBSTRUCTIVE PULMONARY DISEASE

REACTIONS (6)
  - DYSPNOEA [None]
  - BRONCHIAL SECRETION RETENTION [None]
  - DRY MOUTH [None]
  - NASAL DRYNESS [None]
  - CHEST PAIN [None]
  - DRUG INEFFECTIVE [None]
